FAERS Safety Report 4405332-9 (Version None)
Quarter: 2004Q3

REPORT INFORMATION
  Report Type: 
  Country: None (occurrence: None)
  Receive Date: 20040715
  Receipt Date: 20040706
  Transmission Date: 20050211
  Serious: Yes (Hospitalization)
  Sender: FDA-Public Use
  Company Number: 2004-07-0108

PATIENT
  Sex: Male

DRUGS (7)
  1. PEG-INTRON [Suspect]
     Dosage: 80-70 MCG QW; SUBCUTANEOUS (SEE IMAGE)
     Route: 058
  2. PEG-INTRON [Suspect]
     Dosage: 80-70 MCG QW; SUBCUTANEOUS (SEE IMAGE)
     Route: 058
  3. PEG-INTRON [Suspect]
     Dosage: 80-70 MCG QW; SUBCUTANEOUS (SEE IMAGE)
     Route: 058
  4. REBETOL [Suspect]
     Dosage: 1000-800 MG/D; ORAL  (SEE IMAGE)
     Route: 048
  5. REBETOL [Suspect]
     Dosage: 1000-800 MG/D; ORAL  (SEE IMAGE)
     Route: 048
  6. REBETOL [Suspect]
     Dosage: 1000-800 MG/D; ORAL  (SEE IMAGE)
     Route: 048
  7. ... [Concomitant]

REACTIONS (1)
  - PULMONARY FIBROSIS [None]
